FAERS Safety Report 7599138-X (Version None)
Quarter: 2011Q3

REPORT INFORMATION
  Report Type: 
  Country: None (occurrence: None)
  Receive Date: 20110711
  Receipt Date: 20110627
  Transmission Date: 20111222
  Serious: Yes (Other)
  Sender: FDA-Public Use
  Company Number: US-BAYER-200943901NA

PATIENT
  Age: 34 Year
  Sex: Female
  Weight: 84 kg

DRUGS (13)
  1. YASMIN [Suspect]
     Indication: CONTRACEPTION
     Dosage: UNK UNK, QD
     Route: 048
     Dates: start: 20021001, end: 20070201
  2. METOCLOPRAMIDE [Concomitant]
  3. CYCLOBENZAPRINE [Concomitant]
  4. NAPROXEN [Concomitant]
  5. YASMIN [Suspect]
     Indication: ACNE
  6. LISINOPRIL [Concomitant]
     Dosage: UNK
     Dates: start: 20020101
  7. VALTREX [Concomitant]
  8. YAZ [Suspect]
     Indication: CONTRACEPTION
     Dosage: UNK
     Route: 048
     Dates: start: 20021001, end: 20070201
  9. FLEXERIL [Concomitant]
  10. YAZ [Suspect]
     Indication: ACNE
  11. IBUPROFEN [Concomitant]
     Dosage: UNK
     Dates: start: 20020101
  12. NAPROXEN (ALEVE) [Concomitant]
  13. HYDROCHLOROTHIAZIDE [Concomitant]
     Dosage: UNK
     Dates: start: 20020101

REACTIONS (12)
  - PAIN IN EXTREMITY [None]
  - DEEP VEIN THROMBOSIS [None]
  - CHEST PAIN [None]
  - SLEEP APNOEA SYNDROME [None]
  - VAGINAL INFECTION [None]
  - MENSTRUATION IRREGULAR [None]
  - MENTAL DISORDER [None]
  - CONSTIPATION [None]
  - HEADACHE [None]
  - FUNCTIONAL GASTROINTESTINAL DISORDER [None]
  - VULVOVAGINAL BURNING SENSATION [None]
  - RENAL DISORDER [None]
